FAERS Safety Report 24896358 (Version 2)
Quarter: 2025Q1

REPORT INFORMATION
  Report Type: Report from Study
  Country: US (occurrence: US)
  Receive Date: 20250128
  Receipt Date: 20250311
  Transmission Date: 20250408
  Serious: Yes (Death)
  Sender: BAUSCH AND LOMB
  Company Number: US-BAUSCH-BL-2025-001136

PATIENT
  Age: 80 Year
  Sex: Female

DRUGS (1)
  1. XIFAXAN [Suspect]
     Active Substance: RIFAXIMIN
     Indication: Product used for unknown indication
     Route: 048
     Dates: start: 2022

REACTIONS (4)
  - Renal disorder [Fatal]
  - Oedema [Fatal]
  - Cirrhosis alcoholic [Fatal]
  - Encephalopathy [Fatal]
